FAERS Safety Report 18257305 (Version 2)
Quarter: 2025Q2

REPORT INFORMATION
  Report Type: Report from Study
  Country: US (occurrence: US)
  Receive Date: 20200911
  Receipt Date: 20250423
  Transmission Date: 20250717
  Serious: Yes (Other)
  Sender: KYOWA
  Company Number: US-KYOWAKIRIN-2020BKK014523

PATIENT

DRUGS (2)
  1. BUROSUMAB [Suspect]
     Active Substance: BUROSUMAB
     Indication: Product used for unknown indication
     Dosage: 70 MG, 1X/4 WEEKS
     Route: 065
     Dates: start: 20190617, end: 202008
  2. BUROSUMAB [Suspect]
     Active Substance: BUROSUMAB
     Dosage: UNK, 1X/4 WEEKS
     Route: 058

REACTIONS (3)
  - Lung neoplasm malignant [Unknown]
  - Blood phosphorus increased [Not Recovered/Not Resolved]
  - Therapy interrupted [Unknown]

NARRATIVE: CASE EVENT DATE: 20200801
